FAERS Safety Report 6507183-8 (Version None)
Quarter: 2009Q4

REPORT INFORMATION
  Report Type: 
  Country: None (occurrence: None)
  Receive Date: 20091221
  Receipt Date: 20091210
  Transmission Date: 20100525
  Serious: Yes (Hospitalization, Other)
  Sender: FDA-Public Use
  Company Number: PHHY2009BR55043

PATIENT
  Sex: Male
  Weight: 90 kg

DRUGS (5)
  1. SANDOSTATIN [Suspect]
     Indication: NEUROENDOCRINE TUMOUR
     Dosage: UNK
     Dates: start: 20060101
  2. SANDOSTATIN LAR [Suspect]
     Dosage: 30 MG, QMO
  3. SANDOSTATIN LAR [Suspect]
     Dosage: 60 MG, QMO
     Dates: start: 20091101
  4. ATENOLOL [Concomitant]
     Indication: HYPERTENSION
     Dosage: 1 TABLET DAILY
     Route: 048
     Dates: start: 20070101
  5. LEXAPRO [Concomitant]
     Indication: DEPRESSION
     Dosage: 1 TABLET DAILY
     Route: 048
     Dates: start: 20060101

REACTIONS (14)
  - DEPRESSION [None]
  - DIARRHOEA [None]
  - ERYTHEMA [None]
  - EYE OEDEMA [None]
  - EYE PAIN [None]
  - FATIGUE [None]
  - HEADACHE [None]
  - HYPERTENSION [None]
  - HYPERTHYROIDISM [None]
  - INSOMNIA [None]
  - JAUNDICE [None]
  - LACRIMATION INCREASED [None]
  - POLLAKIURIA [None]
  - RETINAL DISORDER [None]
